FAERS Safety Report 18790723 (Version 7)
Quarter: 2025Q2

REPORT INFORMATION
  Report Type: Spontaneous
  Country: US (occurrence: US)
  Receive Date: 20210126
  Receipt Date: 20250402
  Transmission Date: 20250717
  Serious: No
  Sender: PFIZER
  Company Number: US-PFIZER INC-2021047900

PATIENT
  Age: 60 Year
  Sex: Male
  Weight: 99 kg

DRUGS (26)
  1. INLYTA [Suspect]
     Active Substance: AXITINIB
     Indication: Renal cell carcinoma
     Dosage: 1 MG, 2X/DAY
     Route: 048
     Dates: start: 2019
  2. INLYTA [Suspect]
     Active Substance: AXITINIB
     Indication: Renal cancer
     Dosage: 1 MG, 1X/DAY/1 MG DAILY
  3. INLYTA [Suspect]
     Active Substance: AXITINIB
     Dosage: 1 MG, 2X/DAY
     Route: 048
  4. LEVOTHYROXINE SODIUM [Concomitant]
     Active Substance: LEVOTHYROXINE SODIUM
     Dosage: 50 UG, 1X/DAY
     Route: 048
  5. ALLOPURINOL [Concomitant]
     Active Substance: ALLOPURINOL
     Indication: Gout
     Dosage: 100 MG, 1X/DAY
     Route: 048
  6. XARELTO [Concomitant]
     Active Substance: RIVAROXABAN
     Indication: Pulmonary embolism
     Dosage: 20 MG, 1X/DAY
     Route: 048
     Dates: start: 2015
  7. XARELTO [Concomitant]
     Active Substance: RIVAROXABAN
     Indication: Anticoagulant therapy
  8. ACETAMINOPHEN [Concomitant]
     Active Substance: ACETAMINOPHEN
  9. ATORVASTATIN [Concomitant]
     Active Substance: ATORVASTATIN
  10. AMLODIPINE [Concomitant]
     Active Substance: AMLODIPINE BESYLATE
  11. DOCUSATE SODIUM [Concomitant]
     Active Substance: DOCUSATE SODIUM
  12. GABAPENTIN [Concomitant]
     Active Substance: GABAPENTIN
  13. HYDROCORTISONE [Concomitant]
     Active Substance: HYDROCORTISONE
  14. LEVOTHYROXINE [Concomitant]
     Active Substance: LEVOTHYROXINE
  15. LOPERAMIDE HYDROCHLORIDE [Concomitant]
     Active Substance: LOPERAMIDE HYDROCHLORIDE
  16. LOPERAMIDE [Concomitant]
     Active Substance: LOPERAMIDE
  17. LORATADINE [Concomitant]
     Active Substance: LORATADINE
  18. LORAZEPAM [Concomitant]
     Active Substance: LORAZEPAM
  19. MELATONIN [Concomitant]
     Active Substance: MELATONIN
  20. OZEMPIC [Concomitant]
     Active Substance: SEMAGLUTIDE
  21. PANTOPRAZOLE [Concomitant]
     Active Substance: PANTOPRAZOLE
  22. PREDNISONE [Concomitant]
     Active Substance: PREDNISONE
  23. SUCRALFATE [Concomitant]
     Active Substance: SUCRALFATE
  24. TRAZODONE [Concomitant]
     Active Substance: TRAZODONE HYDROCHLORIDE
  25. COBAMAMIDE [Concomitant]
     Active Substance: COBAMAMIDE
  26. VITAMIN D3 [Concomitant]
     Active Substance: CHOLECALCIFEROL

REACTIONS (6)
  - Haemorrhoids [Unknown]
  - Memory impairment [Unknown]
  - Diarrhoea [Not Recovered/Not Resolved]
  - Off label use [Unknown]
  - Off label use [Unknown]
  - Product dose omission issue [Unknown]

NARRATIVE: CASE EVENT DATE: 20190101
